FAERS Safety Report 12994778 (Version 2)
Quarter: 2016Q4

REPORT INFORMATION
  Report Type: Spontaneous
  Country: US (occurrence: US)
  Receive Date: 20161202
  Receipt Date: 20161205
  Transmission Date: 20170207
  Serious: Yes (Other)
  Sender: FDA-Public Use
  Company Number: US-IPSEN BIOPHARMACEUTICALS, INC.-2016-10072

PATIENT
  Age: 45 Year
  Sex: Female

DRUGS (3)
  1. DYSPORT [Suspect]
     Active Substance: ABOBOTULINUMTOXINA
     Indication: OFF LABEL USE
  2. DYSPORT [Suspect]
     Active Substance: ABOBOTULINUMTOXINA
     Indication: SKIN WRINKLING
     Dosage: 52 UNITS
     Route: 030
     Dates: start: 20161112, end: 20161112
  3. DYSPORT [Suspect]
     Active Substance: ABOBOTULINUMTOXINA
     Indication: SKIN WRINKLING

REACTIONS (12)
  - Eyelids pruritus [Not Recovered/Not Resolved]
  - Eye discharge [Unknown]
  - Product preparation error [Unknown]
  - Eye pruritus [Not Recovered/Not Resolved]
  - Eyelid oedema [Recovered/Resolved]
  - Swelling face [Unknown]
  - Eye swelling [Recovered/Resolved]
  - Ocular hyperaemia [Recovering/Resolving]
  - Hypersensitivity [Unknown]
  - Eyelid margin crusting [Unknown]
  - Visual impairment [Unknown]
  - Off label use [Unknown]

NARRATIVE: CASE EVENT DATE: 20161114
